FAERS Safety Report 4907260-9 (Version None)
Quarter: 2006Q1

REPORT INFORMATION
  Report Type: 
  Country: None (occurrence: None)
  Receive Date: 20060207
  Receipt Date: 20060124
  Transmission Date: 20060701
  Serious: Yes (Disabling)
  Sender: FDA-Public Use
  Company Number: 200310791

PATIENT
  Age: 75 Year
  Sex: Female
  Weight: 80.7403 kg

DRUGS (17)
  1. BOTOX [Suspect]
     Indication: MUSCLE SPASMS
     Dosage: 400 UNITS PRN IM
     Route: 030
  2. BOTOX [Suspect]
     Indication: NEURALGIA
     Dosage: 400 UNITS PRN IM
     Route: 030
  3. BOTOX [Suspect]
     Indication: PAIN
     Dosage: 400 UNITS PRN IM
     Route: 030
  4. VITAMIN B-12 [Concomitant]
  5. SYNTHROID [Concomitant]
  6. TOPAMAX [Concomitant]
  7. CARDIZEM [Concomitant]
  8. XANAX [Concomitant]
  9. ZOLOFT [Concomitant]
  10. VITAMINS NOS [Concomitant]
  11. MAGNESIUM [Concomitant]
  12. TYLENOL [Concomitant]
  13. TAVIST [Concomitant]
  14. ACIPHEX [Concomitant]
  15. PROVIGIL [Concomitant]
  16. VALIUM [Concomitant]
  17. LAMICTAL [Concomitant]

REACTIONS (33)
  - ACTIVITIES OF DAILY LIVING IMPAIRED [None]
  - ANXIETY [None]
  - ASTHENIA [None]
  - BALANCE DISORDER [None]
  - BOTULISM [None]
  - BRACHIAL PLEXUS INJURY [None]
  - CHEST X-RAY ABNORMAL [None]
  - CHRONIC OBSTRUCTIVE PULMONARY DISEASE [None]
  - DIPLOPIA [None]
  - DYSPHAGIA [None]
  - FALL [None]
  - FEEDING DISORDER [None]
  - FIBROMYALGIA [None]
  - GASTROINTESTINAL DISORDER [None]
  - GASTROOESOPHAGEAL SPHINCTER INSUFFICIENCY [None]
  - GLOSSODYNIA [None]
  - HIATUS HERNIA [None]
  - INTERVERTEBRAL DISC DISORDER [None]
  - JOINT INJURY [None]
  - MOUTH ULCERATION [None]
  - MULTI-ORGAN DISORDER [None]
  - MUSCLE ATROPHY [None]
  - NUCLEAR MAGNETIC RESONANCE IMAGING ABNORMAL [None]
  - OESOPHAGEAL DISORDER [None]
  - ORAL SOFT TISSUE DISORDER [None]
  - OVERDOSE [None]
  - PAIN IN EXTREMITY [None]
  - PARALYSIS [None]
  - RESPIRATORY DISORDER [None]
  - ROTATOR CUFF SYNDROME [None]
  - STRESS [None]
  - SWOLLEN TONGUE [None]
  - TENDON INJURY [None]
